FAERS Safety Report 9365155 (Version 1)
Quarter: 2013Q2

REPORT INFORMATION
  Report Type: Spontaneous
  Country: GB (occurrence: GB)
  Receive Date: 20130624
  Receipt Date: 20130624
  Transmission Date: 20140414
  Serious: Yes (Other)
  Sender: FDA-Public Use
  Company Number: PHHY2013GB063687

PATIENT
  Age: 50 Year
  Sex: Female

DRUGS (5)
  1. TRIAMCINOLONE [Suspect]
     Dosage: 40 MG, UNK
  2. RITONAVIR [Interacting]
  3. LAMIVUDINE [Concomitant]
  4. ABACAVIR [Concomitant]
  5. DARUNAVIR [Concomitant]

REACTIONS (9)
  - Cushingoid [Unknown]
  - Lethargy [Unknown]
  - Swelling face [Unknown]
  - Weight increased [Unknown]
  - Blood glucose increased [Unknown]
  - Glycosuria [Unknown]
  - Drug interaction [Unknown]
  - Dizziness postural [Unknown]
  - Myopathy [Unknown]
